FAERS Safety Report 7804862-7 (Version None)
Quarter: 2011Q4

REPORT INFORMATION
  Report Type: 
  Country: None (occurrence: None)
  Receive Date: 20111010
  Receipt Date: 20111005
  Transmission Date: 20120403
  Serious: Yes (Death, Other)
  Sender: FDA-Public Use
  Company Number: US-ABBOTT-11P-163-0855926-00

PATIENT
  Sex: Male

DRUGS (17)
  1. FUROSEMIDE [Concomitant]
     Indication: PRODUCT USED FOR UNKNOWN INDICATION
     Route: 048
     Dates: start: 20110707
  2. METOPROLOL SUCCINATE [Concomitant]
     Indication: PRODUCT USED FOR UNKNOWN INDICATION
     Dosage: EXTENDED, AT BEDTIME
     Route: 048
     Dates: start: 20110418
  3. DIAZEPAM [Concomitant]
     Indication: PRODUCT USED FOR UNKNOWN INDICATION
     Route: 048
     Dates: start: 20060526
  4. POTASSIUM CHLORIDE [Concomitant]
     Indication: PRODUCT USED FOR UNKNOWN INDICATION
     Dosage: TBCR
     Dates: start: 20091222
  5. OMEPRAZOLE [Concomitant]
     Indication: PRODUCT USED FOR UNKNOWN INDICATION
     Dosage: DELAYED RELEASE
     Route: 048
     Dates: start: 20110108
  6. HUMIRA [Suspect]
     Indication: PSORIASIS
     Dosage: 3 INJ. WITHIN THE LAST MONTH
     Dates: start: 20110701
  7. HUMIRA [Suspect]
     Indication: PSORIATIC ARTHROPATHY
  8. FELODIPINE [Concomitant]
     Indication: PRODUCT USED FOR UNKNOWN INDICATION
     Dosage: EXTENDED RELEASE 24 HR
     Route: 048
  9. LIPITOR [Concomitant]
     Indication: PRODUCT USED FOR UNKNOWN INDICATION
     Route: 048
     Dates: start: 20060526
  10. TIZANIDINE HCL [Concomitant]
     Indication: PRODUCT USED FOR UNKNOWN INDICATION
     Dosage: HC1, MIDDAY AND MID AFTERNOON
     Route: 048
     Dates: start: 20110722
  11. TRAMADOL HCL [Concomitant]
     Indication: PRODUCT USED FOR UNKNOWN INDICATION
     Dosage: HC1, 3-4 TIMES DAILY
     Route: 048
     Dates: start: 20090430
  12. ASPIRIN [Concomitant]
     Indication: PRODUCT USED FOR UNKNOWN INDICATION
     Dates: start: 20101102
  13. HUMALOG [Concomitant]
     Indication: PRODUCT USED FOR UNKNOWN INDICATION
     Dosage: 100 UNIT/ML, USE AS DIRECTED WITH PUMP
     Route: 058
     Dates: start: 20051027
  14. ACETAMINOPHEN W/ CODEINE [Concomitant]
     Indication: PRODUCT USED FOR UNKNOWN INDICATION
     Dosage: ACTIVE, 1-2 TABLETS EVERY 6 HOURS
     Route: 048
     Dates: start: 20110801
  15. VITAMIN D [Concomitant]
     Indication: PRODUCT USED FOR UNKNOWN INDICATION
     Route: 048
     Dates: start: 20110418
  16. HYZAAR [Concomitant]
     Indication: PRODUCT USED FOR UNKNOWN INDICATION
     Dosage: 100-25 MG
     Route: 048
     Dates: start: 20110117
  17. ZETIA [Concomitant]
     Indication: PRODUCT USED FOR UNKNOWN INDICATION
     Route: 048
     Dates: start: 20060403

REACTIONS (24)
  - METASTASES TO SPINE [None]
  - PYREXIA [None]
  - MALAISE [None]
  - DYSPNOEA [None]
  - HYPERGLYCAEMIA [None]
  - CHROMATURIA [None]
  - PRURITUS [None]
  - ACUTE HEPATIC FAILURE [None]
  - ACTIVITIES OF DAILY LIVING IMPAIRED [None]
  - ABDOMINAL TENDERNESS [None]
  - CARDIAC FAILURE CONGESTIVE [None]
  - BILE DUCT CANCER [None]
  - COUGH [None]
  - URINARY TRACT INFECTION [None]
  - RESPIRATION ABNORMAL [None]
  - PATHOLOGICAL FRACTURE [None]
  - RENAL FAILURE ACUTE [None]
  - HEPATIC ENCEPHALOPATHY [None]
  - DYSURIA [None]
  - DECREASED APPETITE [None]
  - BACK PAIN [None]
  - LEUKOCYTOSIS [None]
  - ABDOMINAL PAIN [None]
  - CONSTIPATION [None]
